FAERS Safety Report 13533548 (Version 6)
Quarter: 2019Q1

REPORT INFORMATION
  Report Type: Report from Study
  Country: CN (occurrence: CN)
  Receive Date: 20170510
  Receipt Date: 20190202
  Transmission Date: 20190417
  Serious: Yes (Other)
  Sender: FDA-Public Use
  Company Number: PHHY2016CN074065

PATIENT
  Age: 53 Year
  Sex: Male
  Weight: 57 kg

DRUGS (94)
  1. FUROSEMIDE. [Concomitant]
     Active Substance: FUROSEMIDE
     Dosage: 40 MG, QD
     Route: 048
     Dates: start: 20160426, end: 20160426
  2. NIFEDIPINE. [Concomitant]
     Active Substance: NIFEDIPINE
     Indication: HYPERTENSION
     Dosage: 30 MG, QD
     Route: 048
     Dates: start: 20160424, end: 20160424
  3. NIFEDIPINE. [Concomitant]
     Active Substance: NIFEDIPINE
     Dosage: 30 MG, QD
     Route: 048
     Dates: start: 20160524, end: 20160527
  4. TACROLIMUS. [Suspect]
     Active Substance: TACROLIMUS
     Dosage: 8 MG, QD
     Route: 065
     Dates: start: 20160428, end: 20160428
  5. TACROLIMUS. [Suspect]
     Active Substance: TACROLIMUS
     Dosage: 8 MG, QD
     Route: 065
     Dates: start: 20160520, end: 20160524
  6. TACROLIMUS. [Suspect]
     Active Substance: TACROLIMUS
     Dosage: 4 MG, QD
     Route: 065
     Dates: start: 20160601, end: 20160614
  7. POTASSIUM CHLORIDE. [Concomitant]
     Active Substance: POTASSIUM CHLORIDE
     Dosage: 8 G, QD
     Route: 042
     Dates: start: 20160422, end: 20160422
  8. CALCINATE//CALCIUM GLUCONATE [Concomitant]
     Dosage: 3 G, QD
     Route: 042
     Dates: start: 20160430, end: 20160430
  9. SODIUM BICARBONATE. [Concomitant]
     Active Substance: SODIUM BICARBONATE
     Indication: ACID BASE BALANCE ABNORMAL
     Dosage: 25 G, QD
     Route: 042
     Dates: start: 20160422, end: 20160422
  10. NIFEDIPIN [Concomitant]
     Active Substance: NIFEDIPINE
     Dosage: 5 MG, QD
     Route: 042
     Dates: start: 20160501, end: 20160501
  11. SODIUM BICARBONATE. [Concomitant]
     Active Substance: SODIUM BICARBONATE
     Indication: ACID BASE BALANCE ABNORMAL
     Dosage: 1 G, TID
     Route: 048
     Dates: start: 20160506, end: 20160511
  12. MYFORTIC [Suspect]
     Active Substance: MYCOPHENOLATE SODIUM
     Indication: RENAL TRANSPLANT
     Dosage: 2160 MG, QD
     Route: 065
     Dates: start: 20160423, end: 20160423
  13. PREDNISONE. [Suspect]
     Active Substance: PREDNISONE
     Indication: IMMUNOSUPPRESSANT DRUG THERAPY
     Dosage: 120 MG, QD
     Route: 065
     Dates: start: 20160425, end: 20160425
  14. METHYLPREDNISOLONE. [Suspect]
     Active Substance: METHYLPREDNISOLONE
     Dosage: 500 MG, QD
     Route: 065
     Dates: start: 20160423, end: 20160423
  15. RAPAMYCIN [Suspect]
     Active Substance: SIROLIMUS
     Indication: IMMUNOSUPPRESSANT DRUG THERAPY
     Dosage: 2 MG, QD
     Route: 065
     Dates: start: 20160502, end: 20160504
  16. DIAZEPAM. [Concomitant]
     Active Substance: DIAZEPAM
     Indication: EPILEPSY
     Dosage: 10 MG, QD
     Route: 030
     Dates: start: 20160423, end: 20160423
  17. POTASSIUM CHLORIDE. [Concomitant]
     Active Substance: POTASSIUM CHLORIDE
     Dosage: 3 G, QD
     Route: 042
     Dates: start: 20160426, end: 20160426
  18. SODIUM BICARBONATE. [Concomitant]
     Active Substance: SODIUM BICARBONATE
     Dosage: 50 G, BID
     Route: 042
     Dates: start: 20160430, end: 20160430
  19. AMBROXOL HYDROCHLORIDE [Concomitant]
     Active Substance: AMBROXOL HYDROCHLORIDE
     Indication: PRODUCTIVE COUGH
     Dosage: 30 MG, BID
     Route: 042
     Dates: start: 20160423, end: 20160428
  20. INSULIN [Concomitant]
     Active Substance: INSULIN NOS
     Dosage: 4 IU, QD
     Route: 042
     Dates: start: 20160422, end: 20160422
  21. RECOMBINANT HUMAN ERYTHROPOIETIN [Concomitant]
     Active Substance: ERYTHROPOIETIN
     Indication: ANAEMIA
     Dosage: 10000 IU, QD, IVHYP
     Route: 042
     Dates: start: 20160511, end: 20160511
  22. LANSOPRAZOLE. [Concomitant]
     Active Substance: LANSOPRAZOLE
     Indication: PROPHYLAXIS
     Dosage: 30 MG, QD
     Route: 042
     Dates: start: 20160422, end: 20160422
  23. LANSOPRAZOLE. [Concomitant]
     Active Substance: LANSOPRAZOLE
     Dosage: 30 MG, QD
     Route: 042
     Dates: start: 20160513, end: 20160513
  24. LEVOTHYROXINE SODIUM. [Concomitant]
     Active Substance: LEVOTHYROXINE SODIUM
     Indication: HYPOTHYROIDISM
     Dosage: 50 UG, QD
     Route: 048
     Dates: start: 20160521, end: 20160527
  25. FUROSEMIDE. [Concomitant]
     Active Substance: FUROSEMIDE
     Dosage: 40 MG, BID
     Route: 048
     Dates: start: 20160520, end: 20160521
  26. FUROSEMIDE. [Concomitant]
     Active Substance: FUROSEMIDE
     Dosage: 40 MG, BID
     Route: 048
     Dates: start: 20160430, end: 20160519
  27. NIFEDIPINE. [Concomitant]
     Active Substance: NIFEDIPINE
     Dosage: 30 MG, BID
     Route: 065
     Dates: start: 20160425, end: 20160523
  28. MYFORTIC [Suspect]
     Active Substance: MYCOPHENOLATE SODIUM
     Dosage: 720 MG, QD
     Route: 065
     Dates: start: 20160504, end: 20160607
  29. PREDNISONE. [Suspect]
     Active Substance: PREDNISONE
     Dosage: 40 MG, QD
     Route: 065
     Dates: start: 20160430, end: 20160430
  30. PREDNISONE. [Suspect]
     Active Substance: PREDNISONE
     Dosage: 15 MG, QD
     Route: 065
     Dates: start: 20160615, end: 20160807
  31. METHYLPREDNISOLONE. [Suspect]
     Active Substance: METHYLPREDNISOLONE
     Dosage: 300 MG, QD
     Route: 065
     Dates: start: 20160428, end: 20160429
  32. DIAZEPAM. [Concomitant]
     Active Substance: DIAZEPAM
     Dosage: 10 MG, QD
     Route: 030
     Dates: start: 20160430, end: 20160430
  33. CALCITRIOL. [Concomitant]
     Active Substance: CALCITRIOL
     Indication: PRODUCT USED FOR UNKNOWN INDICATION
     Dosage: 0.25 UG, QD
     Route: 048
     Dates: start: 20160504, end: 20160504
  34. INSULIN [Concomitant]
     Active Substance: INSULIN NOS
     Indication: CENTRAL NERVOUS SYSTEM STIMULATION
     Dosage: 400 IU, QD
     Route: 042
     Dates: start: 20160422, end: 20160422
  35. INSULIN [Concomitant]
     Active Substance: INSULIN NOS
     Dosage: 4 IU, QD
     Route: 042
     Dates: start: 20160423, end: 20160426
  36. FUROSEMIDE. [Concomitant]
     Active Substance: FUROSEMIDE
     Dosage: 20 MG, QD
     Route: 048
     Dates: start: 20160426, end: 20160426
  37. MYFORTIC [Suspect]
     Active Substance: MYCOPHENOLATE SODIUM
     Indication: IMMUNOSUPPRESSANT DRUG THERAPY
     Dosage: 1440 MG, QD
     Route: 065
     Dates: start: 20160424, end: 20160428
  38. TACROLIMUS. [Suspect]
     Active Substance: TACROLIMUS
     Dosage: 6 MG, QD
     Route: 065
     Dates: start: 20160525, end: 20160527
  39. PREDNISONE. [Suspect]
     Active Substance: PREDNISONE
     Dosage: 80 MG, QD
     Route: 065
     Dates: start: 20160427, end: 20160427
  40. PREDNISONE. [Suspect]
     Active Substance: PREDNISONE
     Dosage: 60 MG, QD
     Route: 065
     Dates: start: 20160428, end: 20160429
  41. PREDNISONE. [Suspect]
     Active Substance: PREDNISONE
     Dosage: 20 MG, QD
     Route: 065
     Dates: start: 20160501, end: 20160614
  42. METHYLPREDNISOLONE. [Suspect]
     Active Substance: METHYLPREDNISOLONE
     Dosage: 500 MG, QD
     Route: 065
     Dates: start: 20160427, end: 20160427
  43. METHYLPREDNISOLONE. [Suspect]
     Active Substance: METHYLPREDNISOLONE
     Dosage: 200 MG, QD
     Route: 065
     Dates: start: 20160430, end: 20160430
  44. ASPIRIN ENTERIC COATED K.P. [Concomitant]
     Active Substance: ASPIRIN
     Indication: PRODUCT USED FOR UNKNOWN INDICATION
     Dosage: 100 MG, QD
     Route: 042
     Dates: start: 20160504, end: 20160527
  45. MOXIFLOXACIN HYDROCHLORIDE. [Concomitant]
     Active Substance: MOXIFLOXACIN HYDROCHLORIDE
     Dosage: 0.4 G, QD
     Route: 048
     Dates: start: 20160523, end: 20160523
  46. INSULIN [Concomitant]
     Active Substance: INSULIN NOS
     Dosage: 4 IU, QD
     Route: 042
     Dates: start: 20160423, end: 20160503
  47. FUROSEMIDE. [Concomitant]
     Active Substance: FUROSEMIDE
     Indication: POLYURIA
     Dosage: 20 MG, BID
     Route: 048
     Dates: start: 20160511, end: 20160527
  48. FUROSEMIDE. [Concomitant]
     Active Substance: FUROSEMIDE
     Dosage: 40 MG, QD
     Route: 048
     Dates: start: 20160424, end: 20160424
  49. FUROSEMIDE. [Concomitant]
     Active Substance: FUROSEMIDE
     Dosage: 40 MG, BID
     Route: 048
     Dates: start: 20160430, end: 20160430
  50. MYFORTIC [Suspect]
     Active Substance: MYCOPHENOLATE SODIUM
     Dosage: 1080 MG, QD
     Route: 065
     Dates: start: 20160429, end: 20160503
  51. BASILIXIMAB [Suspect]
     Active Substance: BASILIXIMAB
     Indication: RENAL TRANSPLANT
     Dosage: 20 MG, QD
     Route: 065
     Dates: start: 20160422, end: 20160422
  52. TACROLIMUS. [Suspect]
     Active Substance: TACROLIMUS
     Dosage: 10 MG, QD
     Route: 065
     Dates: start: 20160429, end: 20160501
  53. PREDNISONE. [Suspect]
     Active Substance: PREDNISONE
     Dosage: 30 MG, QD
     Route: 065
     Dates: start: 20160912, end: 20160927
  54. POTASSIUM CHLORIDE. [Concomitant]
     Active Substance: POTASSIUM CHLORIDE
     Dosage: 5 G, QD
     Route: 042
     Dates: start: 20160425, end: 20160425
  55. CALCINATE//CALCIUM GLUCONATE [Concomitant]
     Dosage: 2 G, QD
     Route: 042
     Dates: start: 20160425, end: 20160425
  56. CALCINATE//CALCIUM GLUCONATE [Concomitant]
     Dosage: 2 G, QD
     Route: 042
     Dates: start: 20160426, end: 20160426
  57. CALCINATE//CALCIUM GLUCONATE [Concomitant]
     Dosage: 2 G, QD
     Dates: start: 20160504, end: 20160504
  58. NIFEDIPIN [Concomitant]
     Active Substance: NIFEDIPINE
     Indication: HYPERTENSION
     Dosage: 10 MG, QD
     Route: 048
     Dates: start: 20160424, end: 20160424
  59. OXYBUPROCAINE HYDROCHLORIDE [Concomitant]
     Active Substance: BENOXINATE HYDROCHLORIDE
     Indication: ANALGESIC THERAPY
     Dosage: 30 MG, QD
     Route: 042
     Dates: start: 20160422, end: 20160422
  60. RECOMBINANT HUMAN ERYTHROPOIETIN [Concomitant]
     Active Substance: ERYTHROPOIETIN
     Dosage: 10000 IU, QD, IVHYP
     Route: 042
     Dates: start: 20160526, end: 20160526
  61. LANSOPRAZOLE. [Concomitant]
     Active Substance: LANSOPRAZOLE
     Dosage: 30 MG, QD
     Route: 042
     Dates: start: 20160423, end: 20160501
  62. MICAFUNGIN SODIUM [Concomitant]
     Active Substance: MICAFUNGIN SODIUM
     Indication: PRODUCT USED FOR UNKNOWN INDICATION
     Dosage: 100 MG, QD
     Route: 042
     Dates: start: 20160423, end: 20160428
  63. FUROSEMIDE. [Concomitant]
     Active Substance: FUROSEMIDE
     Dosage: 40 MG, QD
     Route: 048
     Dates: start: 20160425, end: 20160425
  64. POTASSIUM CITRATE. [Concomitant]
     Active Substance: POTASSIUM CITRATE
     Indication: PRODUCT USED FOR UNKNOWN INDICATION
     Dosage: 4 G, BID
     Route: 048
     Dates: start: 20160501, end: 20160501
  65. MYFORTIC [Suspect]
     Active Substance: MYCOPHENOLATE SODIUM
     Dosage: 1080 MG, QD
     Route: 065
     Dates: start: 20160608
  66. BASILIXIMAB [Suspect]
     Active Substance: BASILIXIMAB
     Indication: IMMUNOSUPPRESSANT DRUG THERAPY
     Dosage: 20 MG, QD
     Route: 065
     Dates: start: 20160426, end: 20160426
  67. PREDNISONE. [Suspect]
     Active Substance: PREDNISONE
     Dosage: 10 MG, QD
     Route: 065
     Dates: start: 20160928
  68. METHYLPREDNISOLONE. [Suspect]
     Active Substance: METHYLPREDNISOLONE
     Indication: IMMUNOSUPPRESSANT DRUG THERAPY
     Dosage: 1000 MG, QD
     Route: 065
     Dates: start: 20160422, end: 20160422
  69. ASPIRIN ENTERIC COATED K.P. [Concomitant]
     Active Substance: ASPIRIN
     Dosage: 100 MG, QD
     Route: 048
     Dates: start: 20160503, end: 20160503
  70. OMEPRAZOLE. [Concomitant]
     Active Substance: OMEPRAZOLE
     Indication: PROPHYLAXIS
     Dosage: 20 MG, QD
     Route: 048
     Dates: start: 20160506, end: 20160527
  71. CALCITRIOL. [Concomitant]
     Active Substance: CALCITRIOL
     Dosage: 0.25 UG, QD
     Route: 048
     Dates: start: 20160505, end: 20160527
  72. POTASSIUM CHLORIDE. [Concomitant]
     Active Substance: POTASSIUM CHLORIDE
     Indication: PRODUCT USED FOR UNKNOWN INDICATION
     Dosage: 2 G, QD
     Route: 042
     Dates: start: 20160424, end: 20160424
  73. MOXIFLOXACIN HYDROCHLORIDE. [Concomitant]
     Active Substance: MOXIFLOXACIN HYDROCHLORIDE
     Dosage: 0.4 G, QD
     Route: 048
     Dates: start: 20160524, end: 20160525
  74. FUROSEMIDE. [Concomitant]
     Active Substance: FUROSEMIDE
     Indication: POLYURIA
     Dosage: 20 MG, QD
     Route: 048
     Dates: start: 20160422, end: 20160422
  75. FUROSEMIDE. [Concomitant]
     Active Substance: FUROSEMIDE
     Dosage: 40 MG, QD
     Route: 048
     Dates: start: 20160501, end: 20160501
  76. PREDNISONE ACETATE [Concomitant]
     Active Substance: PREDNISONE ACETATE
     Indication: IMMUNOSUPPRESSANT DRUG THERAPY
     Dosage: 20 MG, QD
     Route: 065
     Dates: start: 20160424
  77. DIAZEPAM. [Concomitant]
     Active Substance: DIAZEPAM
     Dosage: 10 MG, QD
     Route: 030
     Dates: start: 20160504, end: 20160504
  78. ENEMA (SODIUM PHOSPHATE, DIBASIC\SODIUM PHOSPHATE, MONOBASIC) [Concomitant]
     Active Substance: SODIUM PHOSPHATE, DIBASIC\SODIUM PHOSPHATE, MONOBASIC
     Dosage: 80 ML, QD
     Dates: start: 20160503, end: 20160503
  79. POTASSIUM CHLORIDE. [Concomitant]
     Active Substance: POTASSIUM CHLORIDE
     Dosage: 4 G, QD
     Route: 042
     Dates: start: 20160425, end: 20160425
  80. POTASSIUM CHLORIDE. [Concomitant]
     Active Substance: POTASSIUM CHLORIDE
     Dosage: 5 G, QD
     Route: 042
     Dates: start: 20160423, end: 20160423
  81. CALCINATE//CALCIUM GLUCONATE [Concomitant]
     Indication: PRODUCT USED FOR UNKNOWN INDICATION
     Dosage: 8 G, QD
     Route: 042
     Dates: start: 20160422, end: 20160422
  82. MOXIFLOXACIN HYDROCHLORIDE. [Concomitant]
     Active Substance: MOXIFLOXACIN HYDROCHLORIDE
     Indication: PRODUCT USED FOR UNKNOWN INDICATION
     Dosage: 0.4 G, QD
     Route: 048
     Dates: start: 20160502, end: 20160513
  83. NICARDIPINE HYDROCHLORIDE. [Concomitant]
     Active Substance: NICARDIPINE HYDROCHLORIDE
     Indication: HYPERTENSION
     Dosage: 20 MG, QD
     Route: 042
     Dates: start: 20160422, end: 20160422
  84. TACROLIMUS. [Suspect]
     Active Substance: TACROLIMUS
     Indication: IMMUNOSUPPRESSANT DRUG THERAPY
     Dosage: 6 MG, QD
     Route: 065
     Dates: start: 20160425, end: 20160427
  85. TACROLIMUS. [Suspect]
     Active Substance: TACROLIMUS
     Dosage: 6 MG, QD
     Route: 065
     Dates: start: 20160502, end: 20160519
  86. PREDNISONE. [Suspect]
     Active Substance: PREDNISONE
     Dosage: 100 MG, QD
     Route: 065
     Dates: start: 20160426, end: 20160426
  87. PREDNISONE. [Suspect]
     Active Substance: PREDNISONE
     Dosage: 10 MG, QD
     Route: 065
     Dates: start: 20160808, end: 20160911
  88. RAPAMYCIN [Suspect]
     Active Substance: SIROLIMUS
     Dosage: 1 MG, QD
     Route: 065
     Dates: start: 20160505, end: 20160527
  89. ENEMA (SODIUM PHOSPHATE, DIBASIC\SODIUM PHOSPHATE, MONOBASIC) [Concomitant]
     Active Substance: SODIUM PHOSPHATE, DIBASIC\SODIUM PHOSPHATE, MONOBASIC
     Indication: CONSTIPATION
     Dosage: 40 ML, QD
     Route: 061
     Dates: start: 20160502, end: 20160502
  90. ENEMA (SODIUM PHOSPHATE, DIBASIC\SODIUM PHOSPHATE, MONOBASIC) [Concomitant]
     Active Substance: SODIUM PHOSPHATE, DIBASIC\SODIUM PHOSPHATE, MONOBASIC
     Dosage: 80 ML, QD
     Route: 061
     Dates: start: 20160422, end: 20160422
  91. CALCINATE//CALCIUM GLUCONATE [Concomitant]
     Dosage: 2 G, QD
     Route: 042
     Dates: start: 20160423, end: 20160423
  92. SODIUM BICARBONATE. [Concomitant]
     Active Substance: SODIUM BICARBONATE
     Indication: PRODUCT USED FOR UNKNOWN INDICATION
     Dosage: 0.5 G, TID
     Route: 049
     Dates: start: 20160423, end: 20160428
  93. LIDOCAINE HYDROCHLORIDE. [Concomitant]
     Active Substance: LIDOCAINE HYDROCHLORIDE
     Indication: ANAESTHESIA
     Dosage: 0.2 G, QD
     Route: 042
     Dates: start: 20160429, end: 20160429
  94. INSULIN [Concomitant]
     Active Substance: INSULIN NOS
     Dosage: 2 IU, QD
     Route: 042
     Dates: start: 20160423, end: 20160428

REACTIONS (13)
  - Neutrophil count increased [Unknown]
  - Haemoglobin decreased [Unknown]
  - Blood urea increased [Unknown]
  - Blood cholesterol increased [Unknown]
  - Blood creatinine increased [Unknown]
  - White blood cell count increased [Unknown]
  - Protein urine present [Unknown]
  - Blood triglycerides increased [Unknown]
  - Lymphocyte count decreased [Unknown]
  - Overdose [Recovered/Resolved]
  - Blood albumin decreased [Unknown]
  - Blood glucose increased [Unknown]
  - Low density lipoprotein increased [Unknown]

NARRATIVE: CASE EVENT DATE: 20160423
